FAERS Safety Report 5247327-1 (Version None)
Quarter: 2007Q1

REPORT INFORMATION
  Report Type: 
  Country: None (occurrence: None)
  Receive Date: 20070223
  Receipt Date: 20070223
  Transmission Date: 20070707
  Serious: Yes (Hospitalization)
  Sender: FDA-Public Use
  Company Number: None

PATIENT
  Age: 43 Year
  Sex: Female
  Weight: 83 kg

DRUGS (1)
  1. DOXORUBICIN HCL [Suspect]
     Indication: B-CELL LYMPHOMA
     Dosage: 95MG  EVERY 21 DAYS IV  6 CYCLES
     Route: 042

REACTIONS (8)
  - CARDIAC FAILURE [None]
  - DYSPNOEA EXERTIONAL [None]
  - DYSPNOEA PAROXYSMAL NOCTURNAL [None]
  - EJECTION FRACTION DECREASED [None]
  - NOCTURIA [None]
  - PARAESTHESIA [None]
  - VENTRICULAR DYSFUNCTION [None]
  - WEIGHT DECREASED [None]
